FAERS Safety Report 12272776 (Version 2)
Quarter: 2016Q2

REPORT INFORMATION
  Report Type: Spontaneous
  Country: US (occurrence: US)
  Receive Date: 20160415
  Receipt Date: 20160517
  Transmission Date: 20160815
  Serious: Yes (Other)
  Sender: FDA-Public Use
  Company Number: US-SA-2016SA070083

PATIENT
  Age: 70 Year
  Sex: Female

DRUGS (18)
  1. ATORVASTATIN [Concomitant]
     Active Substance: ATORVASTATIN
  2. ALLOPURINOL. [Concomitant]
     Active Substance: ALLOPURINOL
  3. WARFARIN [Concomitant]
     Active Substance: WARFARIN
  4. METOPROLOL. [Concomitant]
     Active Substance: METOPROLOL
  5. MAGNESIUM [Concomitant]
     Active Substance: MAGNESIUM
  6. LANTUS SOLOSTAR [Suspect]
     Active Substance: INSULIN GLARGINE
     Indication: TYPE 2 DIABETES MELLITUS
     Dosage: DOSE 42-50 U
     Route: 065
     Dates: start: 2015
  7. MONTELUKAST [Concomitant]
     Active Substance: MONTELUKAST SODIUM
  8. LOSARTAN. [Concomitant]
     Active Substance: LOSARTAN
  9. TORSEMIDE. [Concomitant]
     Active Substance: TORSEMIDE
  10. ASPIRIN. [Concomitant]
     Active Substance: ASPIRIN
  11. METFORMIN [Concomitant]
     Active Substance: METFORMIN HYDROCHLORIDE
  12. LORAZEPAM. [Concomitant]
     Active Substance: LORAZEPAM
  13. VITAMIN D [Concomitant]
     Active Substance: CHOLECALCIFEROL
  14. SOLOSTAR [Concomitant]
     Active Substance: DEVICE
     Dates: start: 2016
  15. LANTUS SOLOSTAR [Suspect]
     Active Substance: INSULIN GLARGINE
     Indication: TYPE 2 DIABETES MELLITUS
     Route: 065
     Dates: start: 2016
  16. SOLOSTAR [Concomitant]
     Active Substance: DEVICE
     Dates: start: 2015
  17. BIOTIN [Concomitant]
     Active Substance: BIOTIN
  18. GLIPIZIDE. [Concomitant]
     Active Substance: GLIPIZIDE

REACTIONS (1)
  - Chronic obstructive pulmonary disease [Unknown]
